FAERS Safety Report 23054735 (Version 1)
Quarter: 2023Q4

REPORT INFORMATION
  Report Type: Spontaneous
  Country: US (occurrence: None)
  Receive Date: 20231010
  Receipt Date: 20231010
  Transmission Date: 20240109
  Serious: Yes (Life-Threatening)
  Sender: FDA-Public Use
  Company Number: None

PATIENT
  Age: 80 Year
  Sex: Female
  Weight: 61.7 kg

DRUGS (1)
  1. DARZALEX FASPRO [Suspect]
     Active Substance: DARATUMUMAB\HYALURONIDASE-FIHJ
     Indication: Plasma cell myeloma
     Dosage: OTHER FREQUENCY : PER TREATMENT PLAN;?
     Route: 058
     Dates: start: 20230808, end: 20230808

REACTIONS (6)
  - Nonspecific reaction [None]
  - Sneezing [None]
  - Lacrimation increased [None]
  - Throat irritation [None]
  - Pharyngeal swelling [None]
  - Injection related reaction [None]

NARRATIVE: CASE EVENT DATE: 20230808
